FAERS Safety Report 21663136 (Version 1)
Quarter: 2022Q4

REPORT INFORMATION
  Report Type: Report from Study
  Country: US (occurrence: US)
  Receive Date: 20221130
  Receipt Date: 20221130
  Transmission Date: 20230112
  Serious: No
  Sender: FDA-Public Use
  Company Number: US-ABBVIE-4171188

PATIENT
  Age: 58 Year
  Sex: Female

DRUGS (1)
  1. HUMIRA [Suspect]
     Active Substance: ADALIMUMAB
     Indication: Crohn^s disease
     Dosage: CITRATE FREE?FORM STRENGTH: 40 MG
     Route: 058
     Dates: start: 20221019

REACTIONS (3)
  - Injection site urticaria [Unknown]
  - Injection site erythema [Unknown]
  - Injection site papule [Unknown]

NARRATIVE: CASE EVENT DATE: 20221019
